FAERS Safety Report 9463212 (Version 1)
Quarter: 2013Q3

REPORT INFORMATION
  Report Type: Spontaneous
  Country: GB (occurrence: GB)
  Receive Date: 20130818
  Receipt Date: 20130818
  Transmission Date: 20140515
  Serious: Yes (Other)
  Sender: FDA-Public Use
  Company Number: PHHY2013GB085326

PATIENT
  Age: 64 Year
  Sex: Male

DRUGS (4)
  1. METFORMIN [Suspect]
  2. BYDUREON [Suspect]
     Indication: TYPE 2 DIABETES MELLITUS
     Dosage: 2 MG, UNK
  3. BYDUREON [Suspect]
     Dosage: 2 MG, QW, 9 INJECTIONS
     Route: 058
     Dates: start: 20130510
  4. BYETTA [Suspect]
     Indication: TYPE 2 DIABETES MELLITUS
     Dosage: 10 UG, BID
     Route: 058

REACTIONS (6)
  - Weight decreased [Unknown]
  - Skin disorder [Unknown]
  - Rash [Unknown]
  - Hypoglycaemia [Unknown]
  - Glycosylated haemoglobin increased [Unknown]
  - Therapeutic response decreased [Unknown]
